FAERS Safety Report 7245230-9 (Version None)
Quarter: 2011Q1

REPORT INFORMATION
  Report Type: 
  Country: None (occurrence: None)
  Receive Date: 20110126
  Receipt Date: 20110120
  Transmission Date: 20110831
  Serious: Yes (Other)
  Sender: FDA-Public Use
  Company Number: US-BRISTOL-MYERS SQUIBB COMPANY-15500655

PATIENT
  Age: 70 Year
  Sex: Female

DRUGS (1)
  1. MEGACE [Suspect]
     Indication: BREAST CANCER
     Dosage: NEARLY 30 DAYS

REACTIONS (7)
  - DIZZINESS [None]
  - DECREASED APPETITE [None]
  - VOMITING [None]
  - MEMORY IMPAIRMENT [None]
  - THROMBOSIS [None]
  - DIARRHOEA [None]
  - WEIGHT DECREASED [None]
